FAERS Safety Report 9453611 (Version 1)
Quarter: 2013Q3

REPORT INFORMATION
  Report Type: Spontaneous
  Country: US (occurrence: None)
  Receive Date: 20130809
  Receipt Date: 20130809
  Transmission Date: 20140515
  Serious: Yes (Other)
  Sender: FDA-Public Use
  Company Number: None

PATIENT
  Age: 66 Year
  Sex: Female
  Weight: 70.31 kg

DRUGS (1)
  1. ACETAMINOPHEN W/CODIENE [Suspect]
     Indication: ARTHRALGIA
     Dosage: 1 TAB EVERY 6 HOURS  TWICE DAILY  TAKEN BY MOUTH
     Route: 048

REACTIONS (2)
  - Pruritus [None]
  - Scratch [None]
